FAERS Safety Report 8985529 (Version 1)
Quarter: 2012Q4

REPORT INFORMATION
  Report Type: Report from Study
  Country: DE (occurrence: DE)
  Receive Date: 20121226
  Receipt Date: 20121226
  Transmission Date: 20130627
  Serious: Yes (Hospitalization)
  Sender: FDA-Public Use
  Company Number: DE-TEVA-377600USA

PATIENT
  Age: 69 Year
  Sex: Male
  Weight: 90 kg

DRUGS (5)
  1. TREANDA [Suspect]
     Indication: NON-HODGKIN^S LYMPHOMA
     Route: 042
     Dates: start: 20100224
  2. RITUXIMAB [Suspect]
     Indication: MANTLE CELL LYMPHOMA
     Route: 042
     Dates: start: 20100223
  3. ATORVASTATIN [Concomitant]
     Dosage: 1 Dosage forms Daily;
  4. EZETIMIBE [Concomitant]
     Dosage: 1 Dosage forms Daily;
  5. OLMESARTAN MEDOXOMIL [Concomitant]
     Dosage: 1 Dosage forms Daily;

REACTIONS (2)
  - Venous thrombosis [Recovered/Resolved]
  - Pulmonary embolism [Recovered/Resolved]
